FAERS Safety Report 5703309-4 (Version None)
Quarter: 2008Q2

REPORT INFORMATION
  Report Type: 
  Country: None (occurrence: None)
  Receive Date: 20080411
  Receipt Date: 20080331
  Transmission Date: 20081010
  Serious: Yes (Life-Threatening, Hospitalization, Other)
  Sender: FDA-Public Use
  Company Number: JP-PFIZER INC-2008019897

PATIENT
  Sex: Female
  Weight: 2.89 kg

DRUGS (2)
  1. ZITHROMAX [Suspect]
  2. MYSLEE [Suspect]
     Dates: start: 20080226, end: 20080226

REACTIONS (3)
  - DRUG EXPOSURE DURING PREGNANCY [None]
  - METABOLIC ACIDOSIS [None]
  - VOMITING NEONATAL [None]
